FAERS Safety Report 10418944 (Version 1)
Quarter: 2014Q3

REPORT INFORMATION
  Report Type: Spontaneous
  Country: US (occurrence: None)
  Receive Date: 20140701
  Receipt Date: 20140701
  Transmission Date: 20150326
  Serious: No
  Sender: FDA-Public Use
  Company Number: 1000060586

PATIENT
  Age: 67 Year
  Sex: Male

DRUGS (3)
  1. ENALAPRIL (ENALAPRIL) (ENALAPRIL) [Concomitant]
     Active Substance: ENALAPRIL
  2. LINZESS [Suspect]
     Active Substance: LINACLOTIDE
     Indication: BOWEL MOVEMENT IRREGULARITY
     Route: 048
     Dates: start: 2013, end: 201403
  3. LINZESS [Suspect]
     Active Substance: LINACLOTIDE
     Indication: SPINAL COLUMN STENOSIS
     Route: 048
     Dates: start: 2013, end: 201403

REACTIONS (2)
  - Off label use [None]
  - Drug ineffective [None]

NARRATIVE: CASE EVENT DATE: 2013
